FAERS Safety Report 6501591-7 (Version None)
Quarter: 2009Q4

REPORT INFORMATION
  Report Type: 
  Country: None (occurrence: None)
  Receive Date: 20091216
  Receipt Date: 20090727
  Transmission Date: 20100525
  Serious: No
  Sender: FDA-Public Use
  Company Number: US-BRISTOL-MYERS SQUIBB COMPANY-14718407

PATIENT
  Age: 4 Year

DRUGS (1)
  1. ABILIFY [Suspect]
     Dosage: GIVEN TSP AND 1/2

REACTIONS (1)
  - ACCIDENTAL OVERDOSE [None]
